FAERS Safety Report 15158457 (Version 2)
Quarter: 2018Q3

REPORT INFORMATION
  Report Type: Report from Study
  Country: AT (occurrence: AT)
  Receive Date: 20180718
  Receipt Date: 20180907
  Transmission Date: 20181010
  Serious: Yes (Hospitalization)
  Sender: FDA-Public Use
  Company Number: AT-CELGENEUS-AUT-20180700135

PATIENT
  Age: 80 Year
  Sex: Female
  Weight: 66.6 kg

DRUGS (24)
  1. LIPCOR [Concomitant]
     Active Substance: FENOFIBRATE
     Indication: HYPERLIPIDAEMIA
     Dosage: 200 MILLIGRAM
     Route: 048
  2. DRONABINOL. [Concomitant]
     Active Substance: DRONABINOL
     Indication: PAIN
     Dosage: 6 DROPS
     Route: 048
  3. PANTOPRAZOL [Concomitant]
     Active Substance: PANTOPRAZOLE SODIUM
     Indication: PRODUCT USED FOR UNKNOWN INDICATION
     Dosage: 40 MILLIGRAM
     Route: 048
  4. FORTIMEL [Concomitant]
     Active Substance: DIETARY SUPPLEMENT
     Indication: NUTRITIONAL SUPPLEMENTATION
     Route: 048
     Dates: start: 20180629
  5. ELOMEL [Concomitant]
     Indication: HYPOKALAEMIA
     Dosage: 500 MILLILITER
     Route: 065
     Dates: start: 20180701
  6. ELOMEL [Concomitant]
     Indication: FLUID REPLACEMENT
     Dosage: 500 MILLILITER
     Route: 065
     Dates: start: 20180702
  7. KAL CHLOR [Concomitant]
     Indication: FLUID REPLACEMENT
     Dosage: 20 MILLILITER
     Route: 065
     Dates: start: 20180702
  8. ABRAXANE [Suspect]
     Active Substance: PACLITAXEL
     Route: 041
     Dates: start: 20180530
  9. GEMCITABINE [Suspect]
     Active Substance: GEMCITABINE\GEMCITABINE HYDROCHLORIDE
     Route: 065
  10. KALIORAL [Concomitant]
     Indication: HYPOKALAEMIA
     Dosage: 8 GRAM
     Route: 048
     Dates: start: 20180702
  11. DEXAGENTA [Concomitant]
     Route: 048
     Dates: start: 20180629
  12. NOVALGIN [Concomitant]
     Indication: PAIN
     Dosage: 60 DROPS
     Route: 048
  13. NOVALGIN [Concomitant]
     Route: 048
     Dates: start: 20180629
  14. LOVENOX [Concomitant]
     Active Substance: ENOXAPARIN SODIUM
     Indication: THROMBOSIS
     Dosage: 1000 UIE/ML
     Route: 048
  15. GEMCITABINE [Suspect]
     Active Substance: GEMCITABINE\GEMCITABINE HYDROCHLORIDE
     Indication: PANCREATIC CARCINOMA
     Route: 065
     Dates: start: 20180516, end: 20180523
  16. LOVENOX [Concomitant]
     Active Substance: ENOXAPARIN SODIUM
     Dosage: 600 UIE/ML
     Route: 048
  17. DEXAGENTA [Concomitant]
     Indication: CONJUNCTIVITIS
     Route: 048
     Dates: start: 20180629
  18. KAL CHLOR [Concomitant]
     Indication: HYPOKALAEMIA
     Dosage: 20 MILLILITER
     Route: 065
     Dates: start: 20180701
  19. ABRAXANE [Suspect]
     Active Substance: PACLITAXEL
     Indication: PANCREATIC CARCINOMA
     Route: 041
     Dates: start: 20180516, end: 20180523
  20. HYDAL [Concomitant]
     Active Substance: HYDROMORPHONE HYDROCHLORIDE
     Indication: PRODUCT USED FOR UNKNOWN INDICATION
     Route: 048
  21. OLEOVIT D3 [Concomitant]
     Active Substance: CHOLECALCIFEROL
     Indication: SUPPORTIVE CARE
     Dosage: 10 MILLIGRAM
     Route: 048
  22. OLEOVIT D3 [Concomitant]
     Active Substance: CHOLECALCIFEROL
     Route: 048
     Dates: start: 20180629
  23. SELEXID [Concomitant]
     Indication: URINARY TRACT INFECTION
     Route: 048
     Dates: start: 20180703
  24. KREON [Concomitant]
     Active Substance: PANCRELIPASE
     Indication: SUPPORTIVE CARE
     Route: 048
     Dates: start: 20180529

REACTIONS (5)
  - Diarrhoea [Recovered/Resolved]
  - Vascular access complication [Not Recovered/Not Resolved]
  - Urinary tract infection [Recovered/Resolved]
  - Stasis dermatitis [Not Recovered/Not Resolved]
  - Localised oedema [Not Recovered/Not Resolved]

NARRATIVE: CASE EVENT DATE: 20180523
